FAERS Safety Report 23997392 (Version 1)
Quarter: 2024Q2

REPORT INFORMATION
  Report Type: Spontaneous
  Country: CA (occurrence: CA)
  Receive Date: 20240621
  Receipt Date: 20240621
  Transmission Date: 20240716
  Serious: Yes (Hospitalization, Other)
  Sender: FDA-Public Use
  Company Number: CA-HALEON-2177537

PATIENT
  Age: 75 Year
  Sex: Female
  Weight: 70 kg

DRUGS (69)
  1. DICLOFENAC SODIUM [Suspect]
     Active Substance: DICLOFENAC\DICLOFENAC SODIUM
     Indication: Arthralgia
  2. IBUPROFEN [Suspect]
     Active Substance: IBUPROFEN
     Indication: Arthralgia
  3. IBUPROFEN [Suspect]
     Active Substance: IBUPROFEN
     Indication: Product used for unknown indication
  4. ACETAMINOPHEN [Suspect]
     Active Substance: ACETAMINOPHEN
     Indication: Product used for unknown indication
  5. ACETAMINOPHEN [Suspect]
     Active Substance: ACETAMINOPHEN
  6. ACETAMINOPHEN [Suspect]
     Active Substance: ACETAMINOPHEN
  7. ACETAMINOPHEN [Suspect]
     Active Substance: ACETAMINOPHEN
  8. ACETAMINOPHEN [Suspect]
     Active Substance: ACETAMINOPHEN
  9. BRINZOLAMIDE\TIMOLOL MALEATE [Suspect]
     Active Substance: BRINZOLAMIDE\TIMOLOL MALEATE
     Indication: Glaucoma
     Route: 065
  10. BRINZOLAMIDE\TIMOLOL MALEATE [Suspect]
     Active Substance: BRINZOLAMIDE\TIMOLOL MALEATE
     Route: 047
  11. BRINZOLAMIDE\TIMOLOL MALEATE [Suspect]
     Active Substance: BRINZOLAMIDE\TIMOLOL MALEATE
     Route: 047
  12. BRINZOLAMIDE\TIMOLOL MALEATE [Suspect]
     Active Substance: BRINZOLAMIDE\TIMOLOL MALEATE
  13. BRINZOLAMIDE\TIMOLOL MALEATE [Suspect]
     Active Substance: BRINZOLAMIDE\TIMOLOL MALEATE
     Route: 047
  14. BRINZOLAMIDE\TIMOLOL MALEATE [Suspect]
     Active Substance: BRINZOLAMIDE\TIMOLOL MALEATE
     Route: 047
  15. BRINZOLAMIDE\TIMOLOL MALEATE [Suspect]
     Active Substance: BRINZOLAMIDE\TIMOLOL MALEATE
  16. ESTRADIOL [Suspect]
     Active Substance: ESTRADIOL
     Indication: Menopausal symptoms
  17. ESTRADIOL [Suspect]
     Active Substance: ESTRADIOL
  18. ESTRADIOL [Suspect]
     Active Substance: ESTRADIOL
  19. AMOXICILLIN [Suspect]
     Active Substance: AMOXICILLIN
     Indication: Sinusitis
  20. ATORVASTATIN CALCIUM [Suspect]
     Active Substance: ATORVASTATIN CALCIUM
     Indication: Product used for unknown indication
  21. ATORVASTATIN CALCIUM [Suspect]
     Active Substance: ATORVASTATIN CALCIUM
     Indication: Dyslipidaemia
  22. GABAPENTIN [Suspect]
     Active Substance: GABAPENTIN
     Indication: Arthralgia
  23. GABAPENTIN [Suspect]
     Active Substance: GABAPENTIN
  24. IPRATROPIUM [Suspect]
     Active Substance: IPRATROPIUM
     Indication: Rhinitis
     Route: 045
  25. IPRATROPIUM [Suspect]
     Active Substance: IPRATROPIUM
     Route: 045
  26. IPRATROPIUM [Suspect]
     Active Substance: IPRATROPIUM
     Route: 045
  27. IPRATROPIUM [Suspect]
     Active Substance: IPRATROPIUM
     Route: 045
  28. IPRATROPIUM [Suspect]
     Active Substance: IPRATROPIUM
     Route: 045
  29. IPRATROPIUM [Suspect]
     Active Substance: IPRATROPIUM
     Route: 045
  30. IPRATROPIUM [Suspect]
     Active Substance: IPRATROPIUM
  31. IPRATROPIUM [Suspect]
     Active Substance: IPRATROPIUM
  32. LATANOPROST [Suspect]
     Active Substance: LATANOPROST
     Indication: Glaucoma
     Route: 047
  33. LATANOPROST [Suspect]
     Active Substance: LATANOPROST
     Route: 047
  34. LATANOPROST [Suspect]
     Active Substance: LATANOPROST
     Route: 047
  35. LATANOPROST [Suspect]
     Active Substance: LATANOPROST
     Route: 047
  36. LATANOPROST [Suspect]
     Active Substance: LATANOPROST
     Route: 047
  37. NAPROXEN [Suspect]
     Active Substance: NAPROXEN
     Indication: Arthralgia
  38. PYRIDOXINE [Suspect]
     Active Substance: PYRIDOXINE
     Indication: Product used for unknown indication
  39. AMOXICILLIN [Concomitant]
     Active Substance: AMOXICILLIN
     Indication: Product used for unknown indication
  40. ATORVASTATIN CALCIUM [Concomitant]
     Active Substance: ATORVASTATIN CALCIUM
     Indication: Product used for unknown indication
  41. CHOLECALCIFEROL [Concomitant]
     Active Substance: CHOLECALCIFEROL
     Indication: Product used for unknown indication
  42. DICLOFENAC [Concomitant]
     Active Substance: DICLOFENAC
     Indication: Product used for unknown indication
  43. NAPROXEN SODIUM [Concomitant]
     Active Substance: NAPROXEN\NAPROXEN SODIUM
     Indication: Product used for unknown indication
  44. PARACETAMOL (PARACETAMOL, PSEUDOEPHEDRINE HYDROCHLORIDE) [Concomitant]
     Indication: Product used for unknown indication
  45. PYRIDOXINE HYDROCHLORIDE [Concomitant]
     Active Substance: PYRIDOXINE HYDROCHLORIDE
     Indication: Product used for unknown indication
  46. ESTRADIOL [Suspect]
     Active Substance: ESTRADIOL
     Indication: Product used for unknown indication
     Route: 062
  47. ESTRADIOL [Suspect]
     Active Substance: ESTRADIOL
  48. PREGABALIN [Suspect]
     Active Substance: PREGABALIN
     Indication: Arthralgia
  49. PREGABALIN [Suspect]
     Active Substance: PREGABALIN
  50. PREGABALIN [Suspect]
     Active Substance: PREGABALIN
     Indication: Arthralgia
  51. PYRIDOXINE HYDROCHLORIDE [Suspect]
     Active Substance: PYRIDOXINE HYDROCHLORIDE
     Indication: Product used for unknown indication
  52. PYRIDOXINE HYDROCHLORIDE [Suspect]
     Active Substance: PYRIDOXINE HYDROCHLORIDE
  53. PYRIDOXINE HYDROCHLORIDE [Suspect]
     Active Substance: PYRIDOXINE HYDROCHLORIDE
  54. PYRIDOXINE HYDROCHLORIDE [Suspect]
     Active Substance: PYRIDOXINE HYDROCHLORIDE
  55. PREGABALIN [Suspect]
     Active Substance: PREGABALIN
     Indication: Arthralgia
  56. TELMISARTAN [Suspect]
     Active Substance: TELMISARTAN
     Indication: Hypertension
  57. TELMISARTAN [Suspect]
     Active Substance: TELMISARTAN
  58. TELMISARTAN [Suspect]
     Active Substance: TELMISARTAN
  59. CHOLECALCIFEROL [Suspect]
     Active Substance: CHOLECALCIFEROL
     Indication: Product used for unknown indication
  60. CHOLECALCIFEROL [Suspect]
     Active Substance: CHOLECALCIFEROL
  61. CHOLECALCIFEROL [Suspect]
     Active Substance: CHOLECALCIFEROL
  62. CHOLECALCIFEROL [Suspect]
     Active Substance: CHOLECALCIFEROL
  63. ZOPICLONE [Suspect]
     Active Substance: ZOPICLONE
     Indication: Insomnia
  64. ZOPICLONE [Suspect]
     Active Substance: ZOPICLONE
  65. ZOPICLONE [Suspect]
     Active Substance: ZOPICLONE
  66. CLONAZEPAM [Suspect]
     Active Substance: CLONAZEPAM
     Indication: Product use in unapproved indication
  67. CLONAZEPAM [Suspect]
     Active Substance: CLONAZEPAM
  68. CLONAZEPAM [Suspect]
     Active Substance: CLONAZEPAM
  69. ACETAMINOPHEN [Concomitant]
     Active Substance: ACETAMINOPHEN
     Indication: Product used for unknown indication

REACTIONS (8)
  - Epidermal necrosis [Recovered/Resolved]
  - Nikolsky^s sign [Recovered/Resolved]
  - Rash papular [Recovered/Resolved]
  - Haemoglobin decreased [Recovered/Resolved]
  - Off label use [Recovered/Resolved]
  - Rash erythematous [Recovered/Resolved]
  - Product use in unapproved indication [Recovered/Resolved]
  - Toxic epidermal necrolysis [Recovered/Resolved]
